FAERS Safety Report 5431483-6 (Version None)
Quarter: 2007Q3

REPORT INFORMATION
  Report Type: 
  Country: None (occurrence: None)
  Receive Date: 20070830
  Receipt Date: 20070716
  Transmission Date: 20080115
  Serious: No
  Sender: FDA-Public Use
  Company Number: A0664339A

PATIENT
  Age: 58 Year
  Sex: Female

DRUGS (12)
  1. WELLBUTRIN XL [Suspect]
     Indication: DEPRESSION
     Dosage: 150MG PER DAY
     Route: 048
     Dates: start: 20070101
  2. LEXAPRO [Suspect]
     Dosage: 10MG PER DAY
     Dates: start: 20070101
  3. NORVASC [Concomitant]
  4. CATAPRES [Concomitant]
  5. BENICAR [Concomitant]
  6. PREMPRO [Concomitant]
  7. ACIPHEX [Concomitant]
  8. POTASSIUM CHLORIDE [Concomitant]
  9. LORAZEPAM [Concomitant]
  10. VITAMIN CAP [Concomitant]
  11. FOLIC ACID [Concomitant]
  12. BIAXIN [Concomitant]

REACTIONS (2)
  - GASTRIC DISORDER [None]
  - TREMOR [None]
